FAERS Safety Report 14383087 (Version 1)
Quarter: 2018Q1

REPORT INFORMATION
  Report Type: Report from Study
  Country: None (occurrence: IE)
  Receive Date: 20180115
  Receipt Date: 20180115
  Transmission Date: 20180509
  Serious: Yes (Hospitalization)
  Sender: FDA-Public Use
  Company Number: IE-ABBVIE-18S-229-2220099-00

PATIENT
  Sex: Female

DRUGS (3)
  1. GALFER [Concomitant]
     Active Substance: IRON
     Indication: PRODUCT USED FOR UNKNOWN INDICATION
     Route: 065
  2. SYNAGIS [Suspect]
     Active Substance: PALIVIZUMAB
     Indication: OESOPHAGEAL FISTULA
     Route: 030
     Dates: start: 20171213, end: 20171213
  3. OMEPRAZOLE. [Concomitant]
     Active Substance: OMEPRAZOLE
     Indication: PRODUCT USED FOR UNKNOWN INDICATION
     Route: 065

REACTIONS (2)
  - Off label use [Unknown]
  - Malaise [Unknown]
